FAERS Safety Report 15997775 (Version 3)
Quarter: 2019Q2

REPORT INFORMATION
  Report Type: Spontaneous
  Country: US (occurrence: US)
  Receive Date: 20190222
  Receipt Date: 20190425
  Transmission Date: 20190711
  Serious: Yes (Other)
  Sender: FDA-Public Use
  Company Number: US-PFIZER INC-2019084847

PATIENT
  Sex: Female

DRUGS (8)
  1. PRILOSEC OTC [Suspect]
     Active Substance: OMEPRAZOLE MAGNESIUM
  2. PREVACID [Suspect]
     Active Substance: LANSOPRAZOLE
  3. NEXIUM 24HR [Suspect]
     Active Substance: ESOMEPRAZOLE MAGNESIUM
  4. PRILOSEC [Suspect]
     Active Substance: OMEPRAZOLE MAGNESIUM
  5. PROTONIX [Suspect]
     Active Substance: PANTOPRAZOLE SODIUM
  6. NEXIUM [Suspect]
     Active Substance: ESOMEPRAZOLE MAGNESIUM
  7. PREVACID 24 HR [Suspect]
     Active Substance: LANSOPRAZOLE
  8. DEXILANT [Suspect]
     Active Substance: DEXLANSOPRAZOLE

REACTIONS (3)
  - Renal failure [Unknown]
  - Renal impairment [Unknown]
  - Renal injury [Unknown]
